FAERS Safety Report 16869900 (Version 2)
Quarter: 2019Q4

REPORT INFORMATION
  Report Type: Spontaneous
  Country: US (occurrence: US)
  Receive Date: 20190930
  Receipt Date: 20191031
  Transmission Date: 20200122
  Serious: No
  Sender: FDA-Public Use
  Company Number: US-BAUSCH-BL-2019-024691

PATIENT
  Age: 60 Year
  Sex: Female
  Weight: 81.72 kg

DRUGS (1)
  1. TRULANCE [Suspect]
     Active Substance: PLECANATIDE
     Indication: CONSTIPATION
     Dosage: SEVERAL DAYS AGO (AUG/2019) ON AN UNKNOWN DATE, BY MOUTH
     Route: 048
     Dates: start: 201908

REACTIONS (2)
  - Nasal discomfort [Recovered/Resolved]
  - Gastrooesophageal reflux disease [Recovered/Resolved]

NARRATIVE: CASE EVENT DATE: 201908
